FAERS Safety Report 20626913 (Version 4)
Quarter: 2024Q1

REPORT INFORMATION
  Report Type: Spontaneous
  Country: US (occurrence: US)
  Receive Date: 20220323
  Receipt Date: 20240313
  Transmission Date: 20240410
  Serious: Yes (Hospitalization)
  Sender: FDA-Public Use
  Company Number: US-ELI_LILLY_AND_COMPANY-US202203009828

PATIENT
  Age: 56 Year
  Sex: Female

DRUGS (1)
  1. TRULICITY [Suspect]
     Active Substance: DULAGLUTIDE
     Indication: Type 2 diabetes mellitus
     Dosage: 0.75 MG, WEEKLY (1/W)
     Route: 065

REACTIONS (9)
  - Mass [Not Recovered/Not Resolved]
  - Otorrhoea [Unknown]
  - Skin laceration [Recovered/Resolved]
  - Fear of injection [Unknown]
  - Injection site pain [Unknown]
  - Underdose [Unknown]
  - Blister [Unknown]
  - Neck mass [Unknown]
  - Rash [Unknown]
